FAERS Safety Report 6286901-0 (Version None)
Quarter: 2009Q3

REPORT INFORMATION
  Report Type: 
  Country: None (occurrence: None)
  Receive Date: 20090728
  Receipt Date: 20090409
  Transmission Date: 20100115
  Serious: Yes (Other)
  Sender: FDA-Public Use
  Company Number: US-BAYER-200920269NA

PATIENT
  Sex: Male

DRUGS (26)
  1. MAGNEVIST INJECTION PRE-FILLED SYRINGE [Suspect]
     Indication: NUCLEAR MAGNETIC RESONANCE IMAGING
     Dates: start: 20050807, end: 20050807
  2. PROHANCE [Suspect]
     Indication: NUCLEAR MAGNETIC RESONANCE IMAGING BRAIN
     Dates: start: 19980723, end: 19980723
  3. ENOXAPARIN SODIUM [Concomitant]
     Dates: start: 20050601, end: 20050606
  4. HEPARIN [Concomitant]
     Dosage: DURING CABGX 4 SURGERY.
     Dates: start: 20050606
  5. HEPARIN [Concomitant]
     Dates: start: 20050603, end: 20080608
  6. PROTAMINE SULFATE [Concomitant]
     Dosage: DURING CABG X 4
     Dates: start: 20050606
  7. ASPIRIN [Concomitant]
     Route: 048
  8. BUMEX [Concomitant]
     Dosage: TOTAL DAILY DOSE: 2 MG
     Route: 048
  9. COREG [Concomitant]
     Dosage: TOTAL DAILY DOSE: 6.250 MG
     Route: 048
  10. ENALAPRIL MALEATE [Concomitant]
     Dosage: TOTAL DAILY DOSE: 5 MG
     Route: 048
  11. LOPRESSOR [Concomitant]
     Dosage: TOTAL DAILY DOSE: 25 MG
     Route: 048
  12. ZOCOR [Concomitant]
     Route: 048
  13. WELLBUTRIN XL [Concomitant]
     Dates: start: 20050801
  14. ZOLOFT [Concomitant]
  15. METOPROLOL SUCCINATE [Concomitant]
  16. IRON [Concomitant]
  17. B12 VITAMIN [Concomitant]
  18. BENICAR [Concomitant]
  19. CALCIFEROL [Concomitant]
     Dosage: UNITS
  20. RENAGEL [Concomitant]
     Dosage: WITH MEALS
  21. PRILOSEC [Concomitant]
  22. PLAVIX [Concomitant]
  23. CIPRO [Concomitant]
     Dates: start: 20070101
  24. VANCOMYCIN [Concomitant]
     Dosage: AFTER HD FOR 5 DAYS
     Dates: start: 20070701
  25. PHOSLO [Concomitant]
  26. EPOGEN [Concomitant]
     Dosage: WITH DIALYSIS
     Dates: start: 20050801

REACTIONS (1)
  - NEPHROGENIC SYSTEMIC FIBROSIS [None]
